FAERS Safety Report 16573422 (Version 1)
Quarter: 2019Q3

REPORT INFORMATION
  Report Type: Spontaneous
  Country: IT (occurrence: IT)
  Receive Date: 20190715
  Receipt Date: 20190715
  Transmission Date: 20191004
  Serious: Yes (Other)
  Sender: FDA-Public Use
  Company Number: IT-MYLANLABS-2019M1066341

PATIENT
  Age: 67 Year
  Sex: Female

DRUGS (15)
  1. FOLINIC ACID [Suspect]
     Active Substance: LEUCOVORIN
     Indication: COLORECTAL ADENOCARCINOMA
     Dosage: UNK UNK, CYCLICAL
     Route: 065
     Dates: start: 20141227, end: 201505
  2. OXALIPLATIN. [Suspect]
     Active Substance: OXALIPLATIN
     Dosage: UNK
     Route: 065
  3. PANITUMUMAB [Suspect]
     Active Substance: PANITUMUMAB
     Indication: METASTASES TO LIVER
     Dosage: UNK UNK, CYCLICAL (11 CYCLES)
     Route: 065
     Dates: start: 20141227, end: 201505
  4. 5-FU                               /00098801/ [Suspect]
     Active Substance: FLUOROURACIL
     Indication: COLORECTAL ADENOCARCINOMA
     Dosage: UNK UNK, CYCLICAL (11 CYCLES)
     Route: 065
     Dates: start: 20141227, end: 201505
  5. 5-FU                               /00098801/ [Suspect]
     Active Substance: FLUOROURACIL
     Dosage: UNK
     Route: 065
     Dates: start: 201807
  6. DOXYCYCLINE. [Concomitant]
     Active Substance: DOXYCYCLINE
     Indication: PROPHYLAXIS
     Dosage: UNK
  7. 5-FU                               /00098801/ [Suspect]
     Active Substance: FLUOROURACIL
     Indication: METASTASES TO LIVER
     Dosage: UNK, CYCLICAL (4 CYCLES)
     Route: 065
     Dates: start: 201509, end: 201511
  8. OXALIPLATIN. [Suspect]
     Active Substance: OXALIPLATIN
     Indication: COLORECTAL ADENOCARCINOMA
     Dosage: UNK UNK, CYCLE
     Route: 065
     Dates: start: 20141227, end: 201505
  9. FOLINIC ACID [Suspect]
     Active Substance: LEUCOVORIN
     Dosage: UNK
     Route: 065
     Dates: start: 201807
  10. PANITUMUMAB [Suspect]
     Active Substance: PANITUMUMAB
     Dosage: UNK
     Route: 065
  11. 5-FU                               /00098801/ [Suspect]
     Active Substance: FLUOROURACIL
     Dosage: UNK UNK, CYCLE
     Route: 065
     Dates: start: 20170123, end: 2017
  12. OXALIPLATIN. [Suspect]
     Active Substance: OXALIPLATIN
     Indication: METASTASES TO LIVER
     Dosage: UNK, CYCLICAL (4 CYCLES)
     Route: 065
     Dates: start: 201509, end: 201511
  13. FOLINIC ACID [Suspect]
     Active Substance: LEUCOVORIN
     Indication: METASTASES TO LIVER
     Dosage: CYCLICAL (4 CYCLES)
     Route: 065
     Dates: start: 201509, end: 201511
  14. PANITUMUMAB [Suspect]
     Active Substance: PANITUMUMAB
     Indication: COLORECTAL ADENOCARCINOMA
     Dosage: , CYCLICAL (4 CYCLES)
     Route: 065
     Dates: start: 201509, end: 201511
  15. FOLINIC ACID [Suspect]
     Active Substance: LEUCOVORIN
     Dosage: UNK UNK, CYCLE
     Route: 065
     Dates: start: 20170123, end: 2017

REACTIONS (6)
  - Asthenia [Recovered/Resolved]
  - Neutropenia [Unknown]
  - Colorectal cancer metastatic [Unknown]
  - Rash [Unknown]
  - Hypertension [Unknown]
  - Diarrhoea [Unknown]

NARRATIVE: CASE EVENT DATE: 20150106
